FAERS Safety Report 21753292 (Version 1)
Quarter: 2022Q4

REPORT INFORMATION
  Report Type: Spontaneous
  Country: US (occurrence: US)
  Receive Date: 20221220
  Receipt Date: 20221220
  Transmission Date: 20230112
  Serious: No
  Sender: FDA-Public Use
  Company Number: US-SA-SAC20221216001051

PATIENT
  Sex: Female
  Weight: 121 kg

DRUGS (13)
  1. LUMIZYME [Suspect]
     Active Substance: ALGLUCOSIDASE ALFA
     Indication: Glycogen storage disease type II
     Dosage: 2400 MG, QOW
     Route: 042
     Dates: start: 20110602
  2. HEPARIN [Concomitant]
     Active Substance: HEPARIN SODIUM
  3. DIPHENHYDRAMINE [Concomitant]
     Active Substance: DIPHENHYDRAMINE
  4. SODIUM CHLORIDE [Concomitant]
     Active Substance: SODIUM CHLORIDE
  5. EPINEPHRINE [Concomitant]
     Active Substance: EPINEPHRINE
  6. STERILE WATER [Concomitant]
     Active Substance: WATER
  7. ACETAMINOPHEN [Concomitant]
     Active Substance: ACETAMINOPHEN
  8. XANAX [Concomitant]
     Active Substance: ALPRAZOLAM
  9. VRAYLAR [Concomitant]
     Active Substance: CARIPRAZINE
  10. DORZOLAMIDE [Concomitant]
     Active Substance: DORZOLAMIDE
  11. TIMOLOL [Concomitant]
     Active Substance: TIMOLOL
  12. ARMOUR THYROID [Concomitant]
     Active Substance: THYROID, PORCINE
  13. ASPIRIN [Concomitant]
     Active Substance: ASPIRIN

REACTIONS (1)
  - Eye irritation [Unknown]
